FAERS Safety Report 4275516-1 (Version None)
Quarter: 2004Q1

REPORT INFORMATION
  Report Type: 
  Country: None (occurrence: None)
  Receive Date: 20040121
  Receipt Date: 20030919
  Transmission Date: 20041129
  Serious: Yes (Hospitalization)
  Sender: FDA-Public Use
  Company Number: JP-GLAXOSMITHKLINE-B0309911A

PATIENT
  Age: 65 Year
  Sex: Male

DRUGS (4)
  1. EPIVIR [Suspect]
     Route: 048
     Dates: start: 19980922, end: 20030916
  2. EFAVIRENZ [Suspect]
     Route: 048
     Dates: start: 20030618, end: 20030905
  3. INDINAVIR SULFATE ETHANOLATE [Suspect]
     Route: 048
     Dates: end: 20030601
  4. STAVUDINE [Suspect]
     Route: 048
     Dates: start: 19980922, end: 20030916

REACTIONS (1)
  - PHOTOSENSITIVE RASH [None]
